FAERS Safety Report 18197730 (Version 7)
Quarter: 2020Q4

REPORT INFORMATION
  Report Type: Spontaneous
  Country: US (occurrence: US)
  Receive Date: 20200826
  Receipt Date: 20201231
  Transmission Date: 20210113
  Serious: No
  Sender: FDA-Public Use
  Company Number: US-PFIZER INC-2020329071

PATIENT
  Age: 63 Year
  Sex: Female

DRUGS (3)
  1. LYRICA [Suspect]
     Active Substance: PREGABALIN
     Indication: LUMBAR SPINAL STENOSIS
     Dosage: 150 MG, 2X/DAY
     Route: 048
  2. LYRICA [Suspect]
     Active Substance: PREGABALIN
     Indication: SPINAL OSTEOARTHRITIS
  3. LYRICA [Suspect]
     Active Substance: PREGABALIN
     Indication: OSTEOARTHRITIS

REACTIONS (2)
  - Feeling abnormal [Unknown]
  - Pain [Unknown]
